FAERS Safety Report 5833307-1 (Version None)
Quarter: 2008Q3

REPORT INFORMATION
  Report Type: 
  Country: None (occurrence: None)
  Receive Date: 20080804
  Receipt Date: 20080804
  Transmission Date: 20090109
  Serious: No
  Sender: FDA-Public Use
  Company Number: None

PATIENT
  Sex: Female
  Weight: 54.8852 kg

DRUGS (2)
  1. TRINESSA [Suspect]
     Indication: CONTRACEPTION
     Dosage: ONE TAB QD PO
     Route: 048
     Dates: start: 20080401
  2. TRINESSA [Suspect]
     Indication: DYSMENORRHOEA
     Dosage: ONE TAB QD PO
     Route: 048
     Dates: start: 20080401

REACTIONS (1)
  - METRORRHAGIA [None]
